FAERS Safety Report 22650853 (Version 1)
Quarter: 2023Q2

REPORT INFORMATION
  Report Type: Spontaneous
  Country: BR (occurrence: BR)
  Receive Date: 20230628
  Receipt Date: 20230628
  Transmission Date: 20230721
  Serious: Yes (Death, Hospitalization, Other)
  Sender: FDA-Public Use
  Company Number: BR-SA-2018SA159519

PATIENT
  Sex: Female
  Weight: 44 kg

DRUGS (1)
  1. ENOXAPARIN SODIUM [Suspect]
     Active Substance: ENOXAPARIN SODIUM
     Indication: Product used for unknown indication
     Dosage: 40 MG, QD

REACTIONS (5)
  - Death neonatal [Fatal]
  - Hospitalisation [Unknown]
  - Pulmonary embolism [Unknown]
  - Embolism [Unknown]
  - Exposure during pregnancy [Unknown]
